FAERS Safety Report 9267530 (Version 1)
Quarter: 2013Q2

REPORT INFORMATION
  Report Type: Report from Study
  Country: US (occurrence: US)
  Receive Date: 20130502
  Receipt Date: 20130510
  Transmission Date: 20140414
  Serious: Yes (Other)
  Sender: FDA-Public Use
  Company Number: US-PFIZER INC-2013135689

PATIENT
  Age: 55 Year
  Sex: Female

DRUGS (6)
  1. CARBOPLATIN [Suspect]
     Indication: OVARIAN CANCER RECURRENT
     Dosage: UNK
  2. CISPLATIN [Suspect]
     Indication: OVARIAN CANCER RECURRENT
     Dosage: UNK
     Route: 033
  3. TOPOTECAN HYDROCHLORIDE [Suspect]
     Indication: OVARIAN CANCER RECURRENT
     Dosage: UNK
  4. PACLITAXEL [Suspect]
     Indication: OVARIAN CANCER RECURRENT
     Dosage: UNK
  5. LIPOSOMAL FORMULATION OF DOXORUBICIN [Suspect]
     Indication: OVARIAN CANCER RECURRENT
     Dosage: UNK
  6. BEVACIZUMAB [Suspect]
     Indication: OVARIAN CANCER RECURRENT
     Dosage: UNK

REACTIONS (1)
  - Renal failure chronic [Not Recovered/Not Resolved]
